FAERS Safety Report 23315264 (Version 2)
Quarter: 2024Q4

REPORT INFORMATION
  Report Type: Report from Study
  Country: BR (occurrence: BR)
  Receive Date: 20231219
  Receipt Date: 20241212
  Transmission Date: 20250115
  Serious: Yes (Hospitalization)
  Sender: BAYER HEALTHCARE PHARMACEUTICALS INC.
  Company Number: BR-BAYER-2023A117503

PATIENT
  Age: 67 Year
  Sex: Male

DRUGS (23)
  1. STIVARGA [Suspect]
     Active Substance: REGORAFENIB MONOHYDRATE
     Indication: Hepatocellular carcinoma
     Dosage: 80 MG, QD
     Dates: start: 202210
  2. NEXAVAR [Suspect]
     Active Substance: SORAFENIB
     Indication: Hepatocellular carcinoma
     Dosage: DAILY DOSE 800 MG
     Dates: start: 202105, end: 202210
  3. CODEINE [Suspect]
     Active Substance: CODEINE
     Dosage: 30 MG, Q8HR
     Dates: start: 20231109
  4. DAPAGLIFLOZIN [Concomitant]
     Active Substance: DAPAGLIFLOZIN
     Indication: Diabetes mellitus
     Dosage: TAKE 1 TABLET A DAY 10 MG
  5. GLICLAZIDE [Concomitant]
     Active Substance: GLICLAZIDE
     Indication: Diabetes mellitus
     Dosage: TAKE 2 TABLETS A DAY 30 MG
  6. GLIFAGE [Concomitant]
     Active Substance: METFORMIN HYDROCHLORIDE
     Indication: Diabetes mellitus
     Dosage: TAKE 2 TABLETS A DAY 500 MG
  7. LOSARTAN [Concomitant]
     Active Substance: LOSARTAN
     Indication: Hypertension
     Dosage: TAKE 2 TABLETS A DAY 50 MG
  8. NIFEDIPINE [Concomitant]
     Active Substance: NIFEDIPINE
     Indication: Hypertension
     Dosage: TAKE 2 TABLETS A DAY 20 MG
  9. PROPRANOLOL [Concomitant]
     Active Substance: PROPRANOLOL HYDROCHLORIDE
     Indication: Hypertension
     Dosage: TAKE 2 TABLETS A DAY 40 MG
  10. SIMVASTATIN [Concomitant]
     Active Substance: SIMVASTATIN
     Dosage: TAKE 1 TABLET IN THE EVENING 20 MG
  11. OMEPRAZOLE [Concomitant]
     Active Substance: OMEPRAZOLE
     Dosage: TAKE 1 TABLET A DAY 20 MG
  12. DOMPERIDONE [Concomitant]
     Active Substance: DOMPERIDONE
     Dosage: TAKE 3 TIMES A DAY BEFORE BREAKFAST, LUNCH AND DINNER 10 MG
  13. BROMOPRIDE [Concomitant]
     Active Substance: BROMOPRIDE
     Dosage: TAKE 3 TIMES A DAY BEFORE BREAKFAST, LUNCH AND DINNE 10 MG
  14. COBAMAMIDE\CYPROHEPTADINE HYDROCHLORIDE [Concomitant]
     Active Substance: COBAMAMIDE\CYPROHEPTADINE HYDROCHLORIDE
     Dosage: TAKE 3 TIMES A DAY BEFORE BREAKFAST, LUNCH AND DINNER
  15. NUTREN ACTIV [Concomitant]
     Dosage: UNK
  16. UREA [Concomitant]
     Active Substance: UREA
     Indication: Rash
  17. DEXPANTHENOL [Concomitant]
     Active Substance: DEXPANTHENOL
     Indication: Rash
  18. CLOBETASOL [Concomitant]
     Active Substance: CLOBETASOL
     Indication: Rash
  19. LACTULOSE [Concomitant]
     Active Substance: LACTULOSE
     Indication: Constipation
  20. CAFFEINE\DIPYRONE [Concomitant]
     Active Substance: CAFFEINE\DIPYRONE
     Indication: Pain
     Dosage: 1 G EVERY 6 HR
  21. TRAMADOL [Concomitant]
     Active Substance: TRAMADOL
     Indication: Pain
     Dosage: 50 MG EVERY 6 HOURS
  22. LACTULOSE [Concomitant]
     Active Substance: LACTULOSE
     Dosage: USED 10 ML EVERY 4 HOURS
  23. ELECTROLYTES NOS\POLYETHYLENE GLYCOL 3350 [Concomitant]
     Active Substance: ELECTROLYTES NOS\POLYETHYLENE GLYCOL 3350
     Dosage: 10 MG, BID FOR 20 DAYS

REACTIONS (15)
  - Constipation [None]
  - Scratch [None]
  - Lymphadenopathy [Not Recovered/Not Resolved]
  - Skin lesion [Recovered/Resolved]
  - Pain [Not Recovered/Not Resolved]
  - Nasopharyngitis [Not Recovered/Not Resolved]
  - Abdominal distension [Not Recovered/Not Resolved]
  - Wound [Recovered/Resolved]
  - Rash [Recovering/Resolving]
  - Rash [Recovered/Resolved]
  - Diarrhoea [Not Recovered/Not Resolved]
  - Constipation [None]
  - Nausea [Not Recovered/Not Resolved]
  - Incorrect dosage administered [None]
  - Therapeutic response unexpected [Recovered/Resolved]

NARRATIVE: CASE EVENT DATE: 20221001
